FAERS Safety Report 17548071 (Version 1)
Quarter: 2020Q1

REPORT INFORMATION
  Report Type: Spontaneous
  Country: GB (occurrence: GB)
  Receive Date: 20200317
  Receipt Date: 20200317
  Transmission Date: 20200409
  Serious: Yes (Death, Other)
  Sender: FDA-Public Use
  Company Number: GB-AUROBINDO-AUR-APL-2020-013451

PATIENT
  Sex: Female

DRUGS (4)
  1. PROPRANOLOL [Suspect]
     Active Substance: PROPRANOLOL HYDROCHLORIDE
     Indication: ANXIETY
     Dosage: 240 MILLIGRAM, ONCE A DAY ( BNF-RECOMMENDED MAXIMUM DOSE)
     Route: 065
  2. CITALOPRAM [Suspect]
     Active Substance: CITALOPRAM HYDROBROMIDE
     Indication: DEPRESSION
     Dosage: 20 MILLIGRAM, ONCE A DAY
     Route: 065
     Dates: start: 20170404
  3. CITALOPRAM [Suspect]
     Active Substance: CITALOPRAM HYDROBROMIDE
     Indication: ANXIETY
     Dosage: UNK
     Route: 065
     Dates: start: 201703
  4. PROPRANOLOL [Suspect]
     Active Substance: PROPRANOLOL HYDROCHLORIDE
     Indication: MIGRAINE PROPHYLAXIS
     Dosage: UNK
     Route: 065
     Dates: start: 201602

REACTIONS (2)
  - Overdose [Fatal]
  - Unresponsive to stimuli [Fatal]

NARRATIVE: CASE EVENT DATE: 20180124
